FAERS Safety Report 17378930 (Version 1)
Quarter: 2020Q1

REPORT INFORMATION
  Report Type: Spontaneous
  Country: US (occurrence: US)
  Receive Date: 20200206
  Receipt Date: 20200206
  Transmission Date: 20200409
  Serious: Yes (Other)
  Sender: FDA-Public Use
  Company Number: US-ABBVIE-19K-163-2672134-00

PATIENT
  Sex: Female
  Weight: 63.96 kg

DRUGS (3)
  1. NEURONTIN [Concomitant]
     Active Substance: GABAPENTIN
  2. NEURONTIN [Concomitant]
     Active Substance: GABAPENTIN
     Indication: RHEUMATOID ARTHRITIS
     Dates: start: 2001
  3. HUMIRA [Suspect]
     Active Substance: ADALIMUMAB
     Indication: PRODUCT USED FOR UNKNOWN INDICATION
     Route: 058
     Dates: start: 2003

REACTIONS (7)
  - Hand fracture [Unknown]
  - Fall [Unknown]
  - Chronic kidney disease [Unknown]
  - Adverse drug reaction [Unknown]
  - Anxiety [Unknown]
  - Tuberculosis [Unknown]
  - Nerve injury [Unknown]

NARRATIVE: CASE EVENT DATE: 2005
